FAERS Safety Report 5929913-6 (Version None)
Quarter: 2008Q4

REPORT INFORMATION
  Report Type: 
  Country: None (occurrence: None)
  Receive Date: 20081024
  Receipt Date: 20081014
  Transmission Date: 20090506
  Serious: Yes (Other)
  Sender: FDA-Public Use
  Company Number: FR-PFIZER INC-2008050654

PATIENT
  Sex: Female
  Weight: 56 kg

DRUGS (3)
  1. CHAMPIX [Suspect]
     Indication: SMOKING CESSATION THERAPY
     Route: 048
     Dates: start: 20080310, end: 20080425
  2. TAHOR [Concomitant]
     Indication: HYPERCHOLESTEROLAEMIA
     Route: 048
     Dates: start: 20070717
  3. TRAMADOL HCL [Concomitant]
     Indication: PAIN
     Route: 048
     Dates: start: 20070731

REACTIONS (8)
  - ARTHRALGIA [None]
  - ASTHENIA [None]
  - HEADACHE [None]
  - INFLAMMATION [None]
  - JOINT EFFUSION [None]
  - JOINT STIFFNESS [None]
  - MYALGIA [None]
  - PYREXIA [None]
